FAERS Safety Report 8366824-3 (Version None)
Quarter: 2012Q2

REPORT INFORMATION
  Report Type: 
  Country: None (occurrence: None)
  Receive Date: 20120515
  Receipt Date: 20120515
  Transmission Date: 20120825
  Serious: Yes (Disabling)
  Sender: FDA-Public Use
  Company Number: None

PATIENT
  Age: 36 Year
  Sex: Male
  Weight: 90.7194 kg

DRUGS (2)
  1. CIALIS [Concomitant]
  2. PROPECIA [Suspect]
     Indication: ALOPECIA
     Dosage: 1 DAILY PO
     Route: 048
     Dates: start: 20050601, end: 20080115

REACTIONS (5)
  - DIVORCED [None]
  - DRUG DEPENDENCE [None]
  - LOSS OF LIBIDO [None]
  - FRUSTRATION [None]
  - DEATH OF RELATIVE [None]
